FAERS Safety Report 4765397-1 (Version None)
Quarter: 2005Q3

REPORT INFORMATION
  Report Type: 
  Country: None (occurrence: None)
  Receive Date: 20050908
  Receipt Date: 20050908
  Transmission Date: 20060218
  Serious: Yes (Life-Threatening, Hospitalization, Disabling)
  Sender: FDA-Public Use
  Company Number: None

PATIENT
  Age: 34 Year
  Sex: Female

DRUGS (1)
  1. FERRLECIT [Suspect]
     Indication: IRON DEFICIENCY ANAEMIA
     Dosage: 125 MG    IV
     Route: 042
     Dates: start: 20050810, end: 20050811

REACTIONS (5)
  - APHASIA [None]
  - DROOLING [None]
  - DYSPNOEA [None]
  - FACE OEDEMA [None]
  - INFUSION RELATED REACTION [None]
